FAERS Safety Report 6767925-3 (Version None)
Quarter: 2010Q2

REPORT INFORMATION
  Report Type: 
  Country: None (occurrence: None)
  Receive Date: 20100610
  Receipt Date: 20100527
  Transmission Date: 20101027
  Serious: No
  Sender: FDA-Public Use
  Company Number: AUSAB-10-0229

PATIENT
  Age: 64 Year
  Sex: Female

DRUGS (6)
  1. ABRAXANE [Suspect]
     Indication: BREAST CANCER METASTATIC
     Dosage: (260 MG/M2)
     Dates: start: 20100409
  2. INSULIN (INSULIN) [Concomitant]
  3. METFORMIN HCL [Concomitant]
  4. STATIN [Concomitant]
  5. ACETAMINOPHEN [Concomitant]
  6. OXYCODONE HCL [Concomitant]

REACTIONS (7)
  - BACTERIAL SEPSIS [None]
  - LACTIC ACIDOSIS [None]
  - MUCOSAL INFLAMMATION [None]
  - MULTI-ORGAN FAILURE [None]
  - PANCYTOPENIA [None]
  - RHABDOMYOLYSIS [None]
  - TUMOUR LYSIS SYNDROME [None]
